FAERS Safety Report 15381855 (Version 1)
Quarter: 2018Q3

REPORT INFORMATION
  Report Type: Spontaneous
  Country: US (occurrence: US)
  Receive Date: 20180913
  Receipt Date: 20180913
  Transmission Date: 20181010
  Serious: No
  Sender: FDA-Public Use
  Company Number: US-ASTELLAS-2018US035761

PATIENT
  Age: 58 Year
  Sex: Male

DRUGS (1)
  1. XTANDI [Suspect]
     Active Substance: ENZALUTAMIDE
     Indication: PROSTATE CANCER
     Route: 048
     Dates: start: 20180806

REACTIONS (9)
  - Arthralgia [Unknown]
  - Oedema [Not Recovered/Not Resolved]
  - Blood urine present [Not Recovered/Not Resolved]
  - Back pain [Unknown]
  - Asthenia [Unknown]
  - Hot flush [Not Recovered/Not Resolved]
  - Musculoskeletal stiffness [Unknown]
  - Vomiting [Recovered/Resolved]
  - Fatigue [Unknown]

NARRATIVE: CASE EVENT DATE: 20180806
